FAERS Safety Report 16051046 (Version 1)
Quarter: 2019Q1

REPORT INFORMATION
  Report Type: Spontaneous
  Country: DE (occurrence: DE)
  Receive Date: 20190308
  Receipt Date: 20190308
  Transmission Date: 20190418
  Serious: Yes (Hospitalization)
  Sender: FDA-Public Use
  Company Number: PHHY2018DE061276

PATIENT
  Age: 62 Year
  Sex: Female
  Weight: 120 kg

DRUGS (19)
  1. RITUXIMAB. [Suspect]
     Active Substance: RITUXIMAB
     Dosage: 1400 MG, Q2W
     Route: 058
     Dates: start: 20150422
  2. RITUXIMAB. [Suspect]
     Active Substance: RITUXIMAB
     Indication: LYMPHOMA
     Dosage: 857.2 MG, Q2W
     Route: 042
     Dates: start: 20150123, end: 20150125
  3. CYCLOPHOSPHAMIDE. [Suspect]
     Active Substance: CYCLOPHOSPHAMIDE
     Dosage: 1500 MG, Q2W
     Route: 042
     Dates: start: 20150423
  4. RITUXIMAB. [Suspect]
     Active Substance: RITUXIMAB
     Dosage: 857.2 MG, Q2W
     Route: 042
     Dates: start: 20150323, end: 20150325
  5. COTRIM [Concomitant]
     Active Substance: SULFAMETHOXAZOLE\TRIMETHOPRIM
     Indication: PROPHYLAXIS
     Dosage: 2880 MG, QW
     Route: 048
     Dates: start: 20150327
  6. COTRIM [Concomitant]
     Active Substance: SULFAMETHOXAZOLE\TRIMETHOPRIM
     Dosage: 960 MG, UNK
     Route: 048
     Dates: start: 20150329
  7. RITUXIMAB. [Suspect]
     Active Substance: RITUXIMAB
     Dosage: 1400 MG, Q2W
     Route: 058
     Dates: start: 20150408, end: 20150710
  8. PEGFILGRASTIM [Concomitant]
     Active Substance: PEGFILGRASTIM
     Indication: PROPHYLAXIS
     Dosage: 6 MG, Q2W
     Route: 058
     Dates: start: 20150327, end: 20150327
  9. MEROPENEM. [Concomitant]
     Active Substance: MEROPENEM
     Indication: PYREXIA
     Dosage: 1 G, QD
     Route: 042
     Dates: start: 20150508, end: 20150512
  10. DOXORUBICIN [Suspect]
     Active Substance: DOXORUBICIN
     Indication: LYMPHOMA
     Dosage: 100 MG, Q2W
     Route: 042
     Dates: start: 20150326, end: 20150326
  11. DOXORUBICIN [Suspect]
     Active Substance: DOXORUBICIN
     Dosage: 100 MG, Q2W
     Route: 042
     Dates: start: 20150423, end: 20150423
  12. PREDNISONE. [Suspect]
     Active Substance: PREDNISONE
     Dosage: 100 MG, UNK (2ND CYCLE)
     Route: 048
  13. RITUXIMAB. [Suspect]
     Active Substance: RITUXIMAB
     Dosage: UNK
     Route: 042
  14. CYCLOPHOSPHAMIDE. [Suspect]
     Active Substance: CYCLOPHOSPHAMIDE
     Indication: LYMPHOMA
     Dosage: 1500 MG, Q2W
     Route: 042
     Dates: start: 20150326, end: 20150326
  15. PREDNISONE. [Suspect]
     Active Substance: PREDNISONE
     Indication: LYMPHOMA
     Dosage: 100 MG, UNK (FIRST CYCLE)
     Route: 048
     Dates: start: 20150326, end: 20150330
  16. RITUXIMAB. [Suspect]
     Active Substance: RITUXIMAB
     Dosage: 100 MG, UNK (FIRST CYCLE)
     Route: 048
  17. VINCRISTINE [Suspect]
     Active Substance: VINCRISTINE
     Indication: LYMPHOMA
     Dosage: 2 MG, Q2W
     Route: 042
     Dates: start: 20150326, end: 20150423
  18. PREDNISONE. [Suspect]
     Active Substance: PREDNISONE
     Dosage: 100 MG, UNK (3RD CYCLE)
     Route: 048
     Dates: start: 20150423, end: 20150427
  19. RITUXIMAB. [Suspect]
     Active Substance: RITUXIMAB
     Dosage: 1400 MG, Q2W
     Route: 058
     Dates: start: 20150323, end: 20150710

REACTIONS (4)
  - Febrile infection [Recovered/Resolved]
  - Pyrexia [Recovered/Resolved]
  - Urinary tract infection [Recovering/Resolving]
  - Febrile neutropenia [Recovered/Resolved]

NARRATIVE: CASE EVENT DATE: 20150331
